FAERS Safety Report 21746470 (Version 1)
Quarter: 2022Q4

REPORT INFORMATION
  Report Type: Report from Study
  Country: US (occurrence: US)
  Receive Date: 20221219
  Receipt Date: 20221219
  Transmission Date: 20230112
  Serious: No
  Sender: FDA-Public Use
  Company Number: US-ABBVIE-4197055

PATIENT
  Age: 58 Year
  Sex: Female
  Weight: 73.935 kg

DRUGS (3)
  1. RINVOQ [Suspect]
     Active Substance: UPADACITINIB
     Indication: Rheumatoid arthritis
     Dosage: EXTERNAL RELEASED TABLET
     Route: 048
     Dates: start: 20220712
  2. VITAMIN D3 50 MCG CAPSULE [Concomitant]
     Indication: Product used for unknown indication
     Route: 048
  3. OMEGA-3 1000 MG CAPSULE [Concomitant]
     Indication: Product used for unknown indication
     Route: 048

REACTIONS (1)
  - Arthralgia [Not Recovered/Not Resolved]

NARRATIVE: CASE EVENT DATE: 20221101
